FAERS Safety Report 16956070 (Version 3)
Quarter: 2020Q1

REPORT INFORMATION
  Report Type: Spontaneous
  Country: ES (occurrence: ES)
  Receive Date: 20191024
  Receipt Date: 20200117
  Transmission Date: 20200409
  Serious: Yes (Life-Threatening, Hospitalization)
  Sender: FDA-Public Use
  Company Number: ES-TEVA-2019-ES-1126482

PATIENT
  Age: 38 Year
  Sex: Male

DRUGS (4)
  1. MIRTAZAPINA (2704A) [Suspect]
     Active Substance: MIRTAZAPINE
     Indication: SUICIDE ATTEMPT
     Route: 048
     Dates: start: 20190901, end: 20190901
  2. OP1780 - COCAINA [Interacting]
     Active Substance: COCAINE
     Route: 065
     Dates: start: 20190901, end: 20190901
  3. QUETIAPINA (1136A) [Interacting]
     Active Substance: QUETIAPINE
     Indication: SUICIDE ATTEMPT
     Route: 048
     Dates: start: 20190901, end: 20190901
  4. PREGABALINA (3897A) [Interacting]
     Active Substance: PREGABALIN
     Indication: SUICIDE ATTEMPT
     Route: 048
     Dates: start: 20190901, end: 20190901

REACTIONS (2)
  - Coma [Recovered/Resolved]
  - Drug interaction [Unknown]

NARRATIVE: CASE EVENT DATE: 20190901
